FAERS Safety Report 14107913 (Version 1)
Quarter: 2017Q4

REPORT INFORMATION
  Report Type: Report from Study
  Country: KR (occurrence: KR)
  Receive Date: 20171019
  Receipt Date: 20171019
  Transmission Date: 20180321
  Serious: Yes (Hospitalization, Other)
  Sender: FDA-Public Use
  Company Number: KR-GLAXOSMITHKLINE-KR2017GSK157693

PATIENT
  Age: 76 Year
  Sex: Female
  Weight: 53 kg

DRUGS (11)
  1. FOSTER [Concomitant]
     Active Substance: BECLOMETHASONE\FORMOTEROL
     Indication: CHRONIC OBSTRUCTIVE PULMONARY DISEASE
     Dosage: UNK
     Dates: start: 20110617
  2. LANSTON LFDT [Concomitant]
     Active Substance: LANSOPRAZOLE
     Indication: CHRONIC OBSTRUCTIVE PULMONARY DISEASE
     Dosage: 15 MG, QD
     Dates: start: 20150313
  3. ALEGYSAL [Concomitant]
     Indication: RHINITIS
     Dosage: 10 MG, BID
     Dates: start: 20161110
  4. LUKIO [Concomitant]
     Indication: RHINITIS
     Dosage: 10 MG, QD
     Dates: start: 20161004
  5. RIZE [Concomitant]
     Active Substance: CLOTIAZEPAM
     Indication: RHINITIS
     Dosage: 5 MG, BID
     Dates: start: 20141124
  6. UMECLIDINIUM BR+VILANTEROL TRIFENATATE [Suspect]
     Active Substance: UMECLIDINIUM BROMIDE\VILANTEROL TRIFENATATE
     Indication: CHRONIC OBSTRUCTIVE PULMONARY DISEASE
     Dosage: 25 MG, QD
     Route: 055
     Dates: start: 20170517, end: 20170611
  7. SPIRIVA RESPIMAT [Concomitant]
     Active Substance: TIOTROPIUM BROMIDE
     Indication: CHRONIC OBSTRUCTIVE PULMONARY DISEASE
     Dosage: UNK
     Dates: start: 20130117
  8. MADIPINE [Concomitant]
     Indication: HYPERTENSION
     Dosage: 10 MG, QD
     Dates: start: 20170410, end: 20170522
  9. AERIUS [Concomitant]
     Active Substance: DESLORATADINE
     Indication: RHINITIS
     Dosage: 5 MG, QD
     Dates: start: 20141023
  10. SEKINARIN PATCH [Concomitant]
     Indication: CHRONIC OBSTRUCTIVE PULMONARY DISEASE
     Dosage: 15 MG, QD
     Dates: start: 20140318
  11. ONBREZ [Concomitant]
     Active Substance: INDACATEROL
     Indication: CHRONIC OBSTRUCTIVE PULMONARY DISEASE
     Dosage: UNK
     Dates: start: 20130117

REACTIONS (1)
  - Pneumonia [Recovered/Resolved]

NARRATIVE: CASE EVENT DATE: 20170518
